FAERS Safety Report 22029947 (Version 1)
Quarter: 2023Q1

REPORT INFORMATION
  Report Type: Spontaneous
  Country: CA (occurrence: CA)
  Receive Date: 20230223
  Receipt Date: 20230223
  Transmission Date: 20230417
  Serious: Yes (Hospitalization, Other)
  Sender: FDA-Public Use
  Company Number: CA-GILEAD-2023-0617877

PATIENT
  Age: 50 Year
  Sex: Female
  Weight: 82 kg

DRUGS (1)
  1. YESCARTA [Suspect]
     Active Substance: AXICABTAGENE CILOLEUCEL
     Indication: Primary mediastinal large B-cell lymphoma
     Dosage: UNK, CYCLICAL
     Route: 042

REACTIONS (2)
  - Coombs negative haemolytic anaemia [Unknown]
  - Febrile neutropenia [Unknown]
